FAERS Safety Report 7154069-4 (Version None)
Quarter: 2010Q4

REPORT INFORMATION
  Report Type: 
  Country: None (occurrence: None)
  Receive Date: 20101213
  Receipt Date: 20101203
  Transmission Date: 20110411
  Serious: Yes (Other)
  Sender: FDA-Public Use
  Company Number: US-ASTRAZENECA-2010SE57422

PATIENT
  Sex: Female

DRUGS (2)
  1. TOPROL-XL [Suspect]
     Route: 048
  2. MIRTAZAPINE [Suspect]
     Route: 065

REACTIONS (5)
  - DEPRESSION [None]
  - DROOLING [None]
  - GAIT DISTURBANCE [None]
  - INCONTINENCE [None]
  - SUICIDAL IDEATION [None]
